FAERS Safety Report 5678161-6 (Version None)
Quarter: 2008Q1

REPORT INFORMATION
  Report Type: 
  Country: None (occurrence: None)
  Receive Date: 20080319
  Receipt Date: 20080314
  Transmission Date: 20080703
  Serious: Yes (Death)
  Sender: FDA-Public Use
  Company Number: OMPQ-NO-0803S-0172

PATIENT
  Age: 82 Year
  Sex: Female
  Weight: 48 kg

DRUGS (3)
  1. OMNIPAQUE 300 [Suspect]
     Indication: SALIVARY GLAND NEOPLASM
     Dosage: 90 ML, SINGLE DOSE, I.V.
     Route: 042
     Dates: start: 20080313, end: 20080313
  2. OMNIPAQUE 300 [Suspect]
  3. UNSPECIFIED CARDIOVASCULAR MEDICATION [Concomitant]

REACTIONS (3)
  - CARDIO-RESPIRATORY ARREST [None]
  - HAEMOPTYSIS [None]
  - PULMONARY OEDEMA [None]
